FAERS Safety Report 4469342-8 (Version None)
Quarter: 2004Q4

REPORT INFORMATION
  Report Type: 
  Country: None (occurrence: None)
  Receive Date: 20041008
  Receipt Date: 20040121
  Transmission Date: 20050328
  Serious: No
  Sender: FDA-Public Use
  Company Number: US-BRISTOL-MYERS SQUIBB COMPANY-12484275

PATIENT
  Sex: Male

DRUGS (2)
  1. AVAPRO [Suspect]
     Route: 048
  2. ALTACE [Concomitant]

REACTIONS (1)
  - ERECTILE DYSFUNCTION [None]
